FAERS Safety Report 8520512-9 (Version None)
Quarter: 2012Q3

REPORT INFORMATION
  Report Type: 
  Country: None (occurrence: None)
  Receive Date: 20120719
  Receipt Date: 20120716
  Transmission Date: 20120928
  Serious: Yes (Other)
  Sender: FDA-Public Use
  Company Number: ES-ROXANE LABORATORIES, INC.-2012-RO-01553RO

PATIENT
  Age: 58 Year
  Sex: Male

DRUGS (2)
  1. CORTICOSTEROIDS [Suspect]
     Indication: PSORIASIS
     Route: 061
  2. METHOTREXATE [Suspect]
     Indication: PSORIASIS
     Route: 048

REACTIONS (2)
  - SKIN PAPILLOMA [None]
  - DRUG INEFFECTIVE [None]
